FAERS Safety Report 5662894-1 (Version None)
Quarter: 2008Q1

REPORT INFORMATION
  Report Type: 
  Country: None (occurrence: None)
  Receive Date: 20080313
  Receipt Date: 20080311
  Transmission Date: 20080703
  Serious: Yes (Other)
  Sender: FDA-Public Use
  Company Number: US-ASTRAZENECA-2008UW04910

PATIENT
  Age: 45 Year
  Sex: Female
  Weight: 79.4 kg

DRUGS (6)
  1. NEXIUM [Suspect]
     Indication: PROPHYLAXIS
     Route: 048
     Dates: start: 20050101
  2. CELEBREX [Suspect]
     Indication: INFLAMMATION
     Dates: end: 20050101
  3. CELEBREX [Suspect]
     Indication: BACK PAIN
     Dates: end: 20050101
  4. CELEBREX [Suspect]
     Indication: MUSCLE STRAIN
     Dates: end: 20050101
  5. ZYRTEC-D 12 HOUR [Suspect]
     Indication: HYPERSENSITIVITY
     Dates: start: 20050101
  6. NAPROSYN [Suspect]
     Indication: INFLAMMATION
     Dates: start: 20050101

REACTIONS (11)
  - ABDOMINAL PAIN UPPER [None]
  - DEPRESSION [None]
  - FLUID RETENTION [None]
  - GAIT DISTURBANCE [None]
  - GASTRIC DISORDER [None]
  - HERNIA [None]
  - MOBILITY DECREASED [None]
  - OEDEMA PERIPHERAL [None]
  - PAIN [None]
  - VOMITING [None]
  - WEIGHT INCREASED [None]
